FAERS Safety Report 5528584-0 (Version None)
Quarter: 2007Q4

REPORT INFORMATION
  Report Type: 
  Country: None (occurrence: None)
  Receive Date: 20071121
  Receipt Date: 20071105
  Transmission Date: 20080405
  Serious: Yes (Other)
  Sender: FDA-Public Use
  Company Number: A-US2007-18475

PATIENT
  Age: 32 Year
  Sex: Female

DRUGS (4)
  1. VENTAVIS [Suspect]
     Indication: PULMONARY HYPERTENSION
     Dosage: RESPIRATORY
     Route: 055
     Dates: start: 20060101, end: 20070101
  2. BROMAZEPAM (BROMAZEPAM) [Concomitant]
  3. FUROSEMIDE [Concomitant]
  4. OMEPRAZOLE [Concomitant]

REACTIONS (3)
  - DIPLOPIA [None]
  - INCORRECT DOSE ADMINISTERED [None]
  - STRABISMUS [None]
